FAERS Safety Report 23682973 (Version 1)
Quarter: 2024Q1

REPORT INFORMATION
  Report Type: Spontaneous
  Country: US (occurrence: None)
  Receive Date: 20240327
  Receipt Date: 20240327
  Transmission Date: 20240410
  Serious: Yes (Hospitalization, Other)
  Sender: FDA-Public Use
  Company Number: None

PATIENT
  Age: 32 Year
  Sex: Female
  Weight: 63 kg

DRUGS (1)
  1. XEOMIN [Suspect]
     Active Substance: INCOBOTULINUMTOXINA
     Indication: Bruxism
     Dosage: FREQUENCY : ONCE;?
     Route: 030
     Dates: start: 20240305, end: 20240305

REACTIONS (27)
  - Headache [None]
  - Dizziness [None]
  - Dyspnoea [None]
  - Fatigue [None]
  - Pain in jaw [None]
  - Sleep apnoea syndrome [None]
  - Panic attack [None]
  - Dyspnoea [None]
  - Dysphonia [None]
  - Dysphagia [None]
  - Muscular weakness [None]
  - Weight decreased [None]
  - Confusional state [None]
  - Vision blurred [None]
  - Bradycardia [None]
  - Tachycardia [None]
  - Exercise tolerance decreased [None]
  - Paralysis [None]
  - Pruritus [None]
  - Oxygen saturation decreased [None]
  - Decreased appetite [None]
  - Jaw disorder [None]
  - Disturbance in attention [None]
  - Anxiety [None]
  - Loss of personal independence in daily activities [None]
  - Tremor [None]
  - Flushing [None]

NARRATIVE: CASE EVENT DATE: 20240305
